FAERS Safety Report 6554672-6 (Version None)
Quarter: 2010Q1

REPORT INFORMATION
  Report Type: 
  Country: None (occurrence: None)
  Receive Date: 20100127
  Receipt Date: 20100115
  Transmission Date: 20100710
  Serious: Yes (Other)
  Sender: FDA-Public Use
  Company Number: US-PFIZER INC-2010006513

PATIENT
  Age: 73 Year
  Sex: Female

DRUGS (1)
  1. XANAX [Suspect]

REACTIONS (1)
  - INTENTIONAL DRUG MISUSE [None]
